FAERS Safety Report 7435273-4 (Version None)
Quarter: 2011Q2

REPORT INFORMATION
  Report Type: 
  Country: None (occurrence: None)
  Receive Date: 20110425
  Receipt Date: 20110411
  Transmission Date: 20111010
  Serious: Yes (Death)
  Sender: FDA-Public Use
  Company Number: US-CELGENEUS-163-21880-11041492

PATIENT
  Sex: Male

DRUGS (9)
  1. PRILOSEC [Concomitant]
     Dosage: 40 MILLIGRAM
     Route: 048
  2. VICODIN [Concomitant]
     Dosage: 5-500MG
     Route: 048
  3. CALCIUM [Concomitant]
     Dosage: 500 MILLIGRAM
     Route: 048
  4. REVLIMID [Suspect]
     Dosage: 10 MILLIGRAM
     Route: 048
     Dates: start: 20100114
  5. REVLIMID [Suspect]
     Dosage: 25 MILLIGRAM
     Route: 048
     Dates: start: 20100601, end: 20110101
  6. BARACLUDE [Concomitant]
     Dosage: 1 MILLIGRAM
     Route: 048
  7. DURAGESIC [Concomitant]
     Dosage: 75 MICROGRAM
     Route: 048
  8. KLOR-CON [Concomitant]
     Dosage: 8 MILLIEQUIVALENTS
     Route: 048
  9. HYDROCHLOROTHIAZIDE [Concomitant]
     Dosage: 25 MILLIGRAM
     Route: 048

REACTIONS (1)
  - LEUKAEMIA PLASMACYTIC [None]
